FAERS Safety Report 4514322-7 (Version None)
Quarter: 2004Q4

REPORT INFORMATION
  Report Type: 
  Country: None (occurrence: None)
  Receive Date: 20041124
  Receipt Date: 20041109
  Transmission Date: 20050328
  Serious: Yes (Hospitalization)
  Sender: FDA-Public Use
  Company Number: DE_041114658

PATIENT
  Age: 71 Year
  Sex: Female

DRUGS (2)
  1. ZYPREXA [Suspect]
     Dosage: 15 MG DAY
     Dates: start: 20041109
  2. LEVOTHYROXINE SODIUM [Concomitant]

REACTIONS (4)
  - ATRIOVENTRICULAR BLOCK [None]
  - DYSPNOEA [None]
  - ELECTROCARDIOGRAM ABNORMAL [None]
  - FATIGUE [None]
